FAERS Safety Report 26170747 (Version 1)
Quarter: 2025Q4

REPORT INFORMATION
  Report Type: Spontaneous
  Country: US (occurrence: US)
  Receive Date: 20251217
  Receipt Date: 20251217
  Transmission Date: 20260117
  Serious: No
  Sender: ALVOGEN
  Company Number: US-ALVOGEN-2025097959

PATIENT
  Age: 63 Year
  Sex: Male

DRUGS (3)
  1. FENTANYL [Suspect]
     Active Substance: FENTANYL
     Indication: Spinal fusion surgery
     Dosage: 3 MONTHS AGO
     Route: 062
     Dates: start: 2025
  2. FENTANYL [Suspect]
     Active Substance: FENTANYL
     Indication: Spinal fusion surgery
     Dosage: FIRST BOX
     Route: 062
     Dates: start: 20250409
  3. FENTANYL [Suspect]
     Active Substance: FENTANYL
     Indication: Spinal fusion surgery
     Dosage: EXPIRATION DATE: UU-AUG-2027?SECOND BOX 25 MCG/HR
     Route: 062
     Dates: start: 20250424

REACTIONS (5)
  - Withdrawal syndrome [Unknown]
  - Device malfunction [Unknown]
  - Device adhesion issue [Unknown]
  - Product use in unapproved indication [Unknown]
  - Wrong technique in product usage process [Unknown]

NARRATIVE: CASE EVENT DATE: 20250101
